FAERS Safety Report 4302193-3 (Version None)
Quarter: 2004Q1

REPORT INFORMATION
  Report Type: 
  Country: None (occurrence: None)
  Receive Date: 20040126
  Receipt Date: 20031007
  Transmission Date: 20041129
  Serious: No
  Sender: FDA-Public Use
  Company Number: USA031049357

PATIENT
  Sex: Male

DRUGS (3)
  1. STRATTERA [Suspect]
     Indication: ATTENTION DEFICIT/HYPERACTIVITY DISORDER
     Dosage: 40 MG/DAY
     Dates: start: 20031006
  2. ZYPREXA ZYDIS [Concomitant]
  3. LITHIUM CARBONATE [Concomitant]

REACTIONS (5)
  - IRRITABILITY [None]
  - MOOD SWINGS [None]
  - MOVEMENT DISORDER [None]
  - SOCIAL AVOIDANT BEHAVIOUR [None]
  - SOMNOLENCE [None]
